FAERS Safety Report 4997619-6 (Version None)
Quarter: 2006Q1

REPORT INFORMATION
  Report Type: 
  Country: None (occurrence: None)
  Receive Date: 20060315
  Receipt Date: 20060117
  Transmission Date: 20060701
  Serious: Yes (Other)
  Sender: FDA-Public Use
  Company Number: 432719

PATIENT
  Sex: Female
  Weight: 78.9 kg

DRUGS (1)
  1. BONIVA [Suspect]

REACTIONS (5)
  - CHEST PAIN [None]
  - ERUCTATION [None]
  - FLATULENCE [None]
  - PHARYNGEAL ULCERATION [None]
  - WEIGHT DECREASED [None]
